FAERS Safety Report 18098137 (Version 1)
Quarter: 2020Q3

REPORT INFORMATION
  Report Type: Spontaneous
  Country: US (occurrence: US)
  Receive Date: 20200731
  Receipt Date: 20200731
  Transmission Date: 20201103
  Serious: Yes (Other)
  Sender: FDA-Public Use
  Company Number: US-GLENMARK PHARMACEUTICALS-2020GMK046877

PATIENT

DRUGS (2)
  1. CALAMINE [Concomitant]
     Active Substance: CALAMINE\FERRIC OXIDE RED\ZINC OXIDE
     Indication: PRURITUS
     Dosage: UNK
     Route: 065
  2. TRIAMCINOLONE ACETONIDE OINTMENT USP [Suspect]
     Active Substance: TRIAMCINOLONE ACETONIDE
     Indication: PRURITUS
     Dosage: UNK, PRN (1 TO 3 TIMES A DAY; EVERY TIME WHEN ITCHES)
     Route: 061

REACTIONS (7)
  - Drug ineffective [Unknown]
  - Pruritus [Not Recovered/Not Resolved]
  - Screaming [Not Recovered/Not Resolved]
  - Feeling abnormal [Not Recovered/Not Resolved]
  - Night sweats [Not Recovered/Not Resolved]
  - Headache [Not Recovered/Not Resolved]
  - Nightmare [Not Recovered/Not Resolved]

NARRATIVE: CASE EVENT DATE: 20200319
